FAERS Safety Report 13118769 (Version 2)
Quarter: 2017Q1

REPORT INFORMATION
  Report Type: Spontaneous
  Country: US (occurrence: US)
  Receive Date: 20170116
  Receipt Date: 20170302
  Transmission Date: 20170428
  Serious: No
  Sender: FDA-Public Use
  Company Number: US-ALLERGAN-1701520US

PATIENT
  Age: 86 Year
  Sex: Female
  Weight: 44.44 kg

DRUGS (2)
  1. ARICEPT [Concomitant]
     Active Substance: DONEPEZIL HYDROCHLORIDE
     Indication: DEMENTIA
     Dosage: UNK
     Route: 065
     Dates: start: 2006, end: 2016
  2. NAMENDA XR [Suspect]
     Active Substance: MEMANTINE HYDROCHLORIDE
     Indication: DEMENTIA
     Dosage: 14 MG, QD
     Dates: start: 2014, end: 2016

REACTIONS (1)
  - Drug ineffective [Unknown]
